FAERS Safety Report 6025312-X (Version None)
Quarter: 2008Q4

REPORT INFORMATION
  Report Type: 
  Country: None (occurrence: None)
  Receive Date: 20081231
  Receipt Date: 20081223
  Transmission Date: 20090506
  Serious: Yes (Other)
  Sender: FDA-Public Use
  Company Number: PHEH2008US11386

PATIENT
  Sex: Female
  Weight: 66.667 kg

DRUGS (22)
  1. LOTREL [Suspect]
     Dosage: 5 MG
     Route: 048
  2. LESCOL XL [Suspect]
     Dosage: 80 MG, QD
     Route: 048
  3. MIRALAX [Suspect]
     Indication: CONSTIPATION
     Dosage: 17 G, QD
     Route: 048
     Dates: start: 20081102
  4. FOSAMAX [Suspect]
     Dosage: 70 MG, QD
     Route: 048
  5. PLAVIX [Suspect]
     Dosage: 75 MG, QD
     Route: 048
  6. ZETIA [Suspect]
     Dosage: 10 MG, QD
     Route: 048
  7. TRAMADOL [Suspect]
     Dosage: 50 MG, TID
     Route: 048
  8. AVAPRO [Suspect]
  9. FLONASE [Concomitant]
  10. ALLOPURINOL [Concomitant]
  11. FOLIC ACID [Concomitant]
  12. ASPIRIN [Concomitant]
  13. IRON [Concomitant]
  14. LYRICA [Concomitant]
  15. SYNTHROID [Concomitant]
  16. ZYDONE [Concomitant]
  17. PRILOSEC [Concomitant]
  18. ASCORBIC ACID [Concomitant]
  19. MULTIVITAMIN PREPARATIONS WITH OR W/O MINERAL [Concomitant]
  20. VITAMIN B COMPLEX CAP [Concomitant]
  21. PROCRIT [Concomitant]
  22. METAMUCIL [Concomitant]

REACTIONS (11)
  - ASTHENIA [None]
  - DEHYDRATION [None]
  - DIARRHOEA [None]
  - DIZZINESS [None]
  - FATIGUE [None]
  - HEADACHE [None]
  - HIATUS HERNIA [None]
  - NAUSEA [None]
  - RETCHING [None]
  - SWOLLEN TONGUE [None]
  - VOMITING [None]
